FAERS Safety Report 15813427 (Version 6)
Quarter: 2019Q4

REPORT INFORMATION
  Report Type: Spontaneous
  Country: CN (occurrence: CN)
  Receive Date: 20190111
  Receipt Date: 20191104
  Transmission Date: 20200122
  Serious: Yes (Death, Hospitalization)
  Sender: FDA-Public Use
  Company Number: CN-CELGENEUS-CHN-20190100220

PATIENT
  Age: 59 Year
  Sex: Male
  Weight: 85 kg

DRUGS (17)
  1. LEVAMLODIPINE BESILATE [Concomitant]
     Active Substance: LEVAMLODIPINE BESYLATE
     Indication: HYPERTENSION
     Dosage: 2.5 MILLIGRAM
     Route: 048
     Dates: start: 2008, end: 20181228
  2. TELMISARTAN. [Concomitant]
     Active Substance: TELMISARTAN
     Indication: HYPERTENSION
     Dosage: 40 MILLIGRAM
     Route: 048
     Dates: start: 2008, end: 20181228
  3. BGB-A317/TISLELIZUMAB [Suspect]
     Active Substance: TISLELIZUMAB
     Indication: SQUAMOUS CELL CARCINOMA OF LUNG
     Dosage: 200 MILLIGRAM
     Route: 041
     Dates: start: 20181017
  4. BGB-A317/TISLELIZUMAB [Suspect]
     Active Substance: TISLELIZUMAB
     Dosage: 200 MILLIGRAM
     Route: 041
     Dates: start: 20181128, end: 20181128
  5. DIHYDROXYPROPYLLINE [Concomitant]
     Indication: MUSCLE SPASMS
     Dosage: .25 GRAM
     Route: 041
     Dates: start: 20181217, end: 20181217
  6. BGB-A317/TISLELIZUMAB [Suspect]
     Active Substance: TISLELIZUMAB
     Dosage: 200 MILLIGRAM
     Route: 041
     Dates: start: 20181107
  7. QIANGLI PIPALU [Concomitant]
     Indication: PRODUCT USED FOR UNKNOWN INDICATION
     Route: 065
  8. ABRAXANE [Suspect]
     Active Substance: PACLITAXEL
     Dosage: 200 MILLIGRAM
     Route: 041
     Dates: start: 20181107
  9. ABRAXANE [Suspect]
     Active Substance: PACLITAXEL
     Dosage: 200 MILLIGRAM
     Route: 041
     Dates: start: 20181128, end: 20181205
  10. AMBROXOL HYDROCHLORIDE [Concomitant]
     Active Substance: AMBROXOL HYDROCHLORIDE
     Indication: PRODUCT USED FOR UNKNOWN INDICATION
     Dosage: 90 MILLIGRAM
     Route: 041
     Dates: start: 20181217, end: 20181217
  11. ABRAXANE [Suspect]
     Active Substance: PACLITAXEL
     Indication: SQUAMOUS CELL CARCINOMA OF LUNG
     Dosage: 200 MILLIGRAM
     Route: 041
     Dates: start: 20181017
  12. CARBOPLATIN. [Suspect]
     Active Substance: CARBOPLATIN
     Indication: SQUAMOUS CELL CARCINOMA OF LUNG
     Dosage: 750 MILLIGRAM
     Route: 041
     Dates: start: 20181017
  13. CARBOPLATIN. [Suspect]
     Active Substance: CARBOPLATIN
     Dosage: 750 MILLIGRAM
     Route: 041
     Dates: start: 20181128, end: 20181128
  14. DIHYDROXYPROPYLLINE [Concomitant]
     Indication: ASTHMA
     Dosage: .25 GRAM
     Route: 030
     Dates: start: 20181219, end: 20181219
  15. LOQUAT [Concomitant]
     Indication: PRODUCTIVE COUGH
     Dosage: 45 MILLILITER
     Route: 048
     Dates: start: 20181213, end: 20181228
  16. CARBOPLATIN. [Suspect]
     Active Substance: CARBOPLATIN
     Dosage: 750 MILLIGRAM
     Route: 041
     Dates: start: 20181107
  17. COMPOUND LIQUORICE [Concomitant]
     Indication: PRODUCTIVE COUGH
     Dosage: 45 MILLILITER
     Route: 048
     Dates: start: 20181213, end: 20181228

REACTIONS (2)
  - Death [Fatal]
  - Pneumonia [Unknown]

NARRATIVE: CASE EVENT DATE: 20181220
